FAERS Safety Report 7014355-5 (Version None)
Quarter: 2010Q3

REPORT INFORMATION
  Report Type: 
  Country: None (occurrence: None)
  Receive Date: 20100922
  Receipt Date: 20100907
  Transmission Date: 20110219
  Serious: Yes (Hospitalization)
  Sender: FDA-Public Use
  Company Number: 2010AM002999

PATIENT
  Age: 47 Year
  Sex: Female
  Weight: 87.9978 kg

DRUGS (34)
  1. SYMLIN [Suspect]
     Indication: TYPE 1 DIABETES MELLITUS
     Dosage: 15 MCG;BID;SC, 15 MCG;BID;SC
     Route: 058
     Dates: start: 20100727, end: 20100729
  2. SYMLIN [Suspect]
     Indication: TYPE 1 DIABETES MELLITUS
     Dosage: 15 MCG;BID;SC, 15 MCG;BID;SC
     Route: 058
     Dates: start: 20100905
  3. AMLODIPINE [Concomitant]
  4. BESYLATE (CON.) [Concomitant]
  5. CRESTOR (CON.) [Concomitant]
  6. NITROGLYCERIN (CON.) [Concomitant]
  7. NOVOLOG (CON.) [Concomitant]
  8. METOPROLOL (CON.) [Concomitant]
  9. ISOSORBIDE MONONITRATE (CON.) [Concomitant]
  10. COZAAR (CON.) [Concomitant]
  11. SODIUM BICARB (CON.) [Concomitant]
  12. LASIX (CON.) [Concomitant]
  13. GABAPENTIN (CON.) [Concomitant]
  14. PHOSLO (CON.) [Concomitant]
  15. RENVELA (CON.) [Concomitant]
  16. NEXIUM (CON.) [Concomitant]
  17. LOVAZA (CON.) [Concomitant]
  18. TRAZODONE (CON.) [Concomitant]
  19. ZEMPLAR (CON.) [Concomitant]
  20. FLUTICASONE (CON.) [Concomitant]
  21. SINGULAIR (CON.) [Concomitant]
  22. FOLIC ACID (CON.) [Concomitant]
  23. ASA (CON.) [Concomitant]
  24. VITAMIN E (CON.) [Concomitant]
  25. VITAMIN B12 (CON.) [Concomitant]
  26. DIFLUCAN (CON.) [Concomitant]
  27. VITAMIN D (CON.) [Concomitant]
  28. XOPONEX (CON.) [Concomitant]
  29. ADVAIR (CON.) [Concomitant]
  30. FEXIDINE (CON.) [Concomitant]
  31. ACZONE GEL (CON.) [Concomitant]
  32. DARVOCET (CON.) [Concomitant]
  33. LIDODERM (CON.) [Concomitant]
  34. PREV MEDS [Concomitant]

REACTIONS (8)
  - ABSCESS LIMB [None]
  - ARTHROPOD BITE [None]
  - BLOOD GLUCOSE DECREASED [None]
  - PNEUMONIA ASPIRATION [None]
  - PYREXIA [None]
  - RENAL FAILURE [None]
  - SWELLING [None]
  - VOMITING [None]
